FAERS Safety Report 13072538 (Version 2)
Quarter: 2017Q1

REPORT INFORMATION
  Report Type: Report from Study
  Country: FR (occurrence: FR)
  Receive Date: 20161229
  Receipt Date: 20170112
  Transmission Date: 20170428
  Serious: Yes (Other)
  Sender: FDA-Public Use
  Company Number: FR-GILEAD-2016-0250720

PATIENT
  Age: 67 Year
  Sex: Female
  Weight: 60 kg

DRUGS (8)
  1. SEROPLEX [Concomitant]
     Active Substance: ESCITALOPRAM OXALATE
     Indication: DEPRESSION
     Dosage: 5 MG, QD
     Dates: start: 2010
  2. TOPALGIC                           /00599202/ [Concomitant]
     Active Substance: TRAMADOL
  3. CANDESARTAN [Concomitant]
     Active Substance: CANDESARTAN
     Indication: DIABETIC NEPHROPATHY
     Dosage: 4 MG, QD
     Dates: start: 2013
  4. DACLATASVIR. [Concomitant]
     Active Substance: DACLATASVIR
     Indication: HEPATITIS C
     Dosage: 60 MG, QD
     Route: 065
     Dates: start: 20140605, end: 20141119
  5. LEVOTHYROX [Concomitant]
     Active Substance: LEVOTHYROXINE
     Indication: HYPOTHYROIDISM
     Dosage: 75 UG, QD
     Dates: start: 2007
  6. JANUVIA [Concomitant]
     Active Substance: SITAGLIPTIN PHOSPHATE
     Indication: DIABETES MELLITUS
     Dosage: 100 MG, QD
     Dates: start: 2011
  7. SOFOSBUVIR [Suspect]
     Active Substance: SOFOSBUVIR
     Indication: HEPATITIS C
     Dosage: 400 MG, QD
     Route: 065
     Dates: start: 20140605, end: 20141119
  8. IMMUGRIP [Suspect]
     Active Substance: INFLUENZA VIRUS VACCINE
     Indication: ANTIVIRAL PROPHYLAXIS
     Dosage: 0.5 ML, QD
     Route: 065
     Dates: start: 20161012, end: 20161012

REACTIONS (3)
  - General physical health deterioration [Recovered/Resolved]
  - Neuralgic amyotrophy [Not Recovered/Not Resolved]
  - Bronchial disorder [Recovered/Resolved]

NARRATIVE: CASE EVENT DATE: 20161012
